FAERS Safety Report 18216958 (Version 1)
Quarter: 2020Q3

REPORT INFORMATION
  Report Type: Spontaneous
  Country: FR (occurrence: FR)
  Receive Date: 20200901
  Receipt Date: 20200901
  Transmission Date: 20201103
  Serious: Yes (Hospitalization)
  Sender: FDA-Public Use
  Company Number: FR-009507513-2008FRA014160

PATIENT
  Age: 71 Year
  Sex: Male
  Weight: 74.5 kg

DRUGS (14)
  1. EMEND [Suspect]
     Active Substance: APREPITANT
     Indication: VOMITING
     Dosage: UNKNOWN
     Route: 048
     Dates: start: 20200801, end: 20200802
  2. DOXORUBICIN [Suspect]
     Active Substance: DOXORUBICIN
     Indication: ALVEOLAR SOFT PART SARCOMA
     Dosage: 60 MILLIGRAM/SQ. METER, CYCLICAL
     Route: 042
     Dates: start: 20200729, end: 20200729
  3. TAHOR [Concomitant]
     Active Substance: ATORVASTATIN CALCIUM
  4. ZOPHREN (ONDANSETRON HYDROCHLORIDE) [Suspect]
     Active Substance: ONDANSETRON HYDROCHLORIDE
     Indication: VOMITING
     Dosage: 8MG/4ML
     Route: 042
     Dates: start: 20200730, end: 20200803
  5. ZYPREXA [Suspect]
     Active Substance: OLANZAPINE
     Indication: VOMITING
     Route: 048
     Dates: start: 20200731, end: 20200802
  6. SOLUPRED (PREDNISOLONE SODIUM METAZOATE) [Suspect]
     Active Substance: PREDNISOLONE SODIUM METAZOATE
     Route: 048
     Dates: start: 20200730, end: 20200804
  7. SPECIAFOLDINE [Concomitant]
     Active Substance: FOLIC ACID
  8. PRIMPERAN [Suspect]
     Active Substance: METOCLOPRAMIDE HYDROCHLORIDE
     Indication: VOMITING
     Dosage: 10 MG/2 ML
     Route: 042
     Dates: start: 20200801, end: 20200801
  9. XANAX [Suspect]
     Active Substance: ALPRAZOLAM
     Indication: PREMEDICATION
     Route: 048
     Dates: start: 20200801, end: 20200801
  10. PLITICAN [Concomitant]
     Active Substance: ALIZAPRIDE HYDROCHLORIDE
  11. HOLOXAN [Suspect]
     Active Substance: IFOSFAMIDE
     Indication: ALVEOLAR SOFT PART SARCOMA
     Dosage: 2500 MILLIEQUIVALENT PER SQUARE METRE
     Route: 042
     Dates: start: 20200729, end: 20200803
  12. LEXOMIL [Concomitant]
     Active Substance: BROMAZEPAM
  13. OXYCONTIN [Concomitant]
     Active Substance: OXYCODONE HYDROCHLORIDE
  14. SEROPLEX [Concomitant]
     Active Substance: ESCITALOPRAM OXALATE

REACTIONS (4)
  - Renal impairment [Not Recovered/Not Resolved]
  - Tremor [Recovered/Resolved]
  - Toxic encephalopathy [Recovering/Resolving]
  - Tachycardia [Recovered/Resolved]

NARRATIVE: CASE EVENT DATE: 20200801
